FAERS Safety Report 9820930 (Version 2)
Quarter: 2014Q1

REPORT INFORMATION
  Report Type: Spontaneous
  Country: US (occurrence: US)
  Receive Date: 20140116
  Receipt Date: 20140303
  Transmission Date: 20141002
  Serious: Yes (Hospitalization)
  Sender: FDA-Public Use
  Company Number: US-B.I. PHARMACEUTICALS,INC./RIDGEFIELD-2014-BI-01106BP

PATIENT
  Sex: Female
  Weight: 61.23 kg

DRUGS (13)
  1. PRADAXA [Suspect]
     Indication: ATRIAL FIBRILLATION
     Dosage: 300 MG
     Route: 065
     Dates: start: 20120129, end: 20120914
  2. ACETAMINOPHEN [Concomitant]
     Route: 048
  3. ACETAMINOPHEN [Concomitant]
     Route: 054
  4. AMIODARONE [Concomitant]
     Dosage: 100 MG
     Route: 048
  5. ASPIRIN [Concomitant]
     Dosage: 81 MG
     Route: 048
  6. CALCIUM-VITAMIN D [Concomitant]
     Route: 048
  7. DESLORATADINE [Concomitant]
     Dosage: 5 MG
     Route: 048
  8. ENALAPRIL [Concomitant]
     Dosage: 25 MG
     Route: 048
  9. LEVOTHYROXINE [Concomitant]
     Dosage: 75 MCG
     Route: 048
  10. MULTIVITAMIN [Concomitant]
     Route: 048
  11. OMEPRAZOLE [Concomitant]
     Dosage: 10 MG
     Route: 048
  12. CRESTOR [Concomitant]
     Dosage: 10 MG
     Route: 048
  13. SERTRALINE [Concomitant]
     Dosage: 75 MG
     Route: 048

REACTIONS (2)
  - Gastrointestinal haemorrhage [Unknown]
  - Anaemia [Unknown]
